FAERS Safety Report 5510764-1 (Version None)
Quarter: 2007Q4

REPORT INFORMATION
  Report Type: 
  Country: None (occurrence: None)
  Receive Date: 20071108
  Receipt Date: 20071030
  Transmission Date: 20080405
  Serious: Yes (Hospitalization)
  Sender: FDA-Public Use
  Company Number: B0493280A

PATIENT
  Age: 4 Year
  Sex: Male
  Weight: 11 kg

DRUGS (6)
  1. LAMICTAL [Suspect]
     Indication: EPILEPSY
     Dosage: 35MG TWICE PER DAY
     Route: 048
     Dates: start: 20050301
  2. TEGRETOL [Suspect]
     Indication: EPILEPSY
     Route: 048
     Dates: start: 20060901, end: 20070601
  3. SABRIL [Suspect]
     Indication: EPILEPSY
     Dosage: 250MG TWICE PER DAY
     Route: 048
     Dates: start: 20070401
  4. LEVOTHYROXINE SODIUM [Concomitant]
     Route: 065
  5. FLIXOTIDE [Concomitant]
     Route: 065
  6. HEMISUCCINATE D'HYDROCORTISONE [Concomitant]
     Route: 065

REACTIONS (5)
  - DRUG INTERACTION [None]
  - HYPOTONIA [None]
  - MALAISE [None]
  - OVERDOSE [None]
  - VOMITING [None]
